FAERS Safety Report 8773858 (Version 2)
Quarter: 2012Q4

REPORT INFORMATION
  Report Type: 
  Country: JP (occurrence: JP)
  Receive Date: 20120907
  Receipt Date: 20120912
  Transmission Date: 20130627
  Serious: Yes (Hospitalization, Other)
  Sender: FDA-Public Use
  Company Number: JP-BRISTOL-MYERS SQUIBB COMPANY-16914749

PATIENT
  Age: 64 Year
  Sex: Male

DRUGS (4)
  1. ABILIFY TABS [Suspect]
     Indication: SCHIZOPHRENIA
     Route: 048
  2. EURODIN [Concomitant]
  3. NITRAZEPAM [Concomitant]
  4. LEVOTOMIN [Concomitant]

REACTIONS (2)
  - Blood creatine phosphokinase increased [Recovered/Resolved]
  - Haematoma [Unknown]
